FAERS Safety Report 10209589 (Version 4)
Quarter: 2016Q3

REPORT INFORMATION
  Report Type: Report from Study
  Country: US (occurrence: US)
  Receive Date: 20140602
  Receipt Date: 20160912
  Transmission Date: 20161109
  Serious: Yes (Hospitalization, Other)
  Sender: FDA-Public Use
  Company Number: US-ROCHE-1366308

PATIENT
  Sex: Female

DRUGS (24)
  1. SINGULAIR [Concomitant]
     Active Substance: MONTELUKAST SODIUM
     Indication: ASTHMA
     Dosage: AT BREAKFAST
     Route: 065
  2. PREDNISONE. [Concomitant]
     Active Substance: PREDNISONE
  3. NEURONTIN [Concomitant]
     Active Substance: GABAPENTIN
  4. PROTONIX [Concomitant]
     Active Substance: PANTOPRAZOLE SODIUM
     Dosage: WITH BREAKFAST AND SUPPER
     Route: 065
  5. IPRATROPIUM BROMIDE. [Concomitant]
     Active Substance: IPRATROPIUM BROMIDE
     Dosage: 4 TIMES A DAY
     Route: 065
  6. NASONEX [Concomitant]
     Active Substance: MOMETASONE FUROATE
     Dosage: TWICE A DAY, MORNING AND EVENING, EACH NOSTRIL
     Route: 065
  7. ALENDRONATE [Concomitant]
     Active Substance: ALENDRONATE SODIUM
     Dosage: 4 ON MONDAY FOR 4 WEEKS
     Route: 065
  8. ATEROL [Concomitant]
  9. VISTARIL [Concomitant]
     Active Substance: HYDROXYZINE PAMOATE
     Dosage: FOR BREAKING OUT AND ITCHING
     Route: 065
  10. GLYNASE [Concomitant]
     Active Substance: GLYBURIDE
     Indication: DIABETES MELLITUS
     Dosage: TWICE DAILY
     Route: 065
  11. GABAPENTIN. [Concomitant]
     Active Substance: GABAPENTIN
  12. XOLAIR [Suspect]
     Active Substance: OMALIZUMAB
     Indication: ASTHMA
     Route: 058
  13. DULERA [Concomitant]
     Active Substance: FORMOTEROL FUMARATE DIHYDRATE\MOMETASONE FUROATE
     Dosage: TWICE A DAY, HAS BEEN DISCONTINUED
     Route: 065
  14. CYCLOBENZAPRINE [Concomitant]
     Active Substance: CYCLOBENZAPRINE
     Dosage: AT BEDTIME
     Route: 065
  15. ALBUTEROL. [Concomitant]
     Active Substance: ALBUTEROL
  16. ADVAIR HFA [Concomitant]
     Active Substance: FLUTICASONE PROPIONATE\SALMETEROL XINAFOATE
     Indication: ASTHMA
     Dosage: 250/50 MC
     Route: 065
  17. SPIRIVA [Concomitant]
     Active Substance: TIOTROPIUM BROMIDE MONOHYDRATE
     Dosage: 1 AT NIGHT
     Route: 065
  18. JANUMET [Concomitant]
     Active Substance: METFORMIN HYDROCHLORIDE\SITAGLIPTIN PHOSPHATE
     Dosage: ON HOLD
     Route: 065
  19. TOPAMAX [Concomitant]
     Active Substance: TOPIRAMATE
     Dosage: 2 A DAY AT BREAKFAST AND SUPPER
     Route: 065
  20. RANITIDINE. [Concomitant]
     Active Substance: RANITIDINE
     Dosage: THROAT BURING
     Route: 065
  21. ZANAFLEX [Concomitant]
     Active Substance: TIZANIDINE HYDROCHLORIDE
  22. WELLBUTRIN [Concomitant]
     Active Substance: BUPROPION HYDROCHLORIDE
     Dosage: AT BREAKFAST AND SUPPER
     Route: 065
  23. XANAX [Concomitant]
     Active Substance: ALPRAZOLAM
     Dosage: 1 IN MORNING + AFTERNOON, 2 AT BEDTIME
     Route: 065
  24. CYMBALTA [Concomitant]
     Active Substance: DULOXETINE HYDROCHLORIDE
     Dosage: AT BREAKFAST AND BEDTIME
     Route: 065

REACTIONS (25)
  - Musculoskeletal pain [Unknown]
  - Blood gases abnormal [Unknown]
  - Dyspnoea [Unknown]
  - Pneumonia [Unknown]
  - Memory impairment [Unknown]
  - Pulmonary cavitation [Unknown]
  - Asthma [Unknown]
  - Type 2 diabetes mellitus [Unknown]
  - Wheezing [Unknown]
  - Gastrooesophageal reflux disease [Unknown]
  - Weight increased [Unknown]
  - Food allergy [Unknown]
  - Lung neoplasm [Unknown]
  - Lung disorder [Unknown]
  - Somnolence [Unknown]
  - Respiratory disorder [Unknown]
  - Cough [Unknown]
  - Chest discomfort [Unknown]
  - Muscle spasms [Unknown]
  - Pulmonary mass [Unknown]
  - Pallor [Unknown]
  - Fall [Unknown]
  - Restless legs syndrome [Unknown]
  - Vomiting [Unknown]
  - Neuropathy peripheral [Unknown]
